FAERS Safety Report 21616656 (Version 2)
Quarter: 2022Q4

REPORT INFORMATION
  Report Type: Spontaneous
  Country: US (occurrence: US)
  Receive Date: 20221118
  Receipt Date: 20221124
  Transmission Date: 20230113
  Serious: No
  Sender: FDA-Public Use
  Company Number: US-SANOFI-01361939

PATIENT
  Sex: Male

DRUGS (2)
  1. DUPIXENT [Suspect]
     Active Substance: DUPILUMAB
     Indication: Dermatitis atopic
     Dosage: UNK
  2. ADBRY [Concomitant]
     Active Substance: TRALOKINUMAB-LDRM

REACTIONS (2)
  - Skin lesion [Unknown]
  - Drug ineffective [Unknown]
